FAERS Safety Report 8185875-5 (Version None)
Quarter: 2012Q1

REPORT INFORMATION
  Report Type: 
  Country: None (occurrence: None)
  Receive Date: 20120305
  Receipt Date: 20120228
  Transmission Date: 20120608
  Serious: Yes (Life-Threatening)
  Sender: FDA-Public Use
  Company Number: FR-ASTRAZENECA-2012SE13937

PATIENT
  Age: 58 Year
  Sex: Female

DRUGS (3)
  1. PROPRANOLOL [Concomitant]
     Route: 048
  2. CARBOCAINE [Suspect]
     Indication: LOCAL ANAESTHESIA
     Route: 050
     Dates: start: 20111101, end: 20111101
  3. CEFUROXIME [Suspect]
     Indication: ANTIBIOTIC PROPHYLAXIS
     Route: 048
     Dates: start: 20111101, end: 20111101

REACTIONS (1)
  - ANAPHYLACTIC SHOCK [None]
